FAERS Safety Report 8246152-7 (Version None)
Quarter: 2012Q1

REPORT INFORMATION
  Report Type: 
  Country: None (occurrence: None)
  Receive Date: 20120330
  Receipt Date: 20120321
  Transmission Date: 20120608
  Serious: Yes (Hospitalization)
  Sender: FDA-Public Use
  Company Number: BR-ELI_LILLY_AND_COMPANY-BR201203006433

PATIENT
  Sex: Female
  Weight: 58 kg

DRUGS (1)
  1. FORTEO [Suspect]
     Indication: OSTEOPOROSIS
     Dosage: 20 UG, QD
     Route: 058
     Dates: start: 20100101

REACTIONS (5)
  - MUSCLE SPASMS [None]
  - DRUG DOSE OMISSION [None]
  - PYREXIA [None]
  - ASTHENIA [None]
  - DRUG WITHDRAWAL SYNDROME [None]
